FAERS Safety Report 18783636 (Version 2)
Quarter: 2021Q1

REPORT INFORMATION
  Report Type: Spontaneous
  Country: JP (occurrence: JP)
  Receive Date: 20210125
  Receipt Date: 20210223
  Transmission Date: 20210419
  Serious: Yes (Hospitalization, Other)
  Sender: FDA-Public Use
  Company Number: JP-PFIZER INC-2021038399

PATIENT
  Age: 73 Year
  Sex: Female
  Weight: 56.6 kg

DRUGS (11)
  1. LEVOFLOXACIN. [Concomitant]
     Active Substance: LEVOFLOXACIN
     Indication: PYELONEPHRITIS
     Dosage: 500 MG, 1X/DAY
     Route: 042
     Dates: start: 20201129, end: 20201130
  2. ZINC. [Concomitant]
     Active Substance: ZINC
     Indication: ZINC DEFICIENCY
     Dosage: 25 MG, 2X/DAY
     Route: 048
     Dates: start: 20200425, end: 20201201
  3. MEROPENEM. [Concomitant]
     Active Substance: MEROPENEM
     Indication: PYELONEPHRITIS
     Dosage: 1 G, 4X/DAY
     Route: 042
     Dates: start: 20201127, end: 20201130
  4. MINOCYCLINE [Concomitant]
     Active Substance: MINOCYCLINE HYDROCHLORIDE
     Indication: PYELONEPHRITIS
     Dosage: 100 MG, 2X/DAY
     Route: 042
     Dates: start: 20201128, end: 20201128
  5. CELECOXIB 100MG PFIZER [Suspect]
     Active Substance: CELECOXIB
     Indication: SPINAL COMPRESSION FRACTURE
     Dosage: 100 MG, 2X/DAY
     Route: 048
     Dates: start: 20201116, end: 20201201
  6. VANCOMYCIN HYDROCHLORIDE. [Concomitant]
     Active Substance: VANCOMYCIN HYDROCHLORIDE
     Indication: PYELONEPHRITIS
     Dosage: 750 MG, 1X/DAY
     Route: 042
     Dates: start: 20201127, end: 20201129
  7. CALONAL [Concomitant]
     Active Substance: ACETAMINOPHEN
     Dosage: UNK, AS NEEDED
     Route: 061
  8. LOXOPROFEN [Concomitant]
     Active Substance: LOXOPROFEN
     Dosage: UNK, AS NEEDED
     Route: 061
  9. TAKECAB [Suspect]
     Active Substance: VONOPRAZAN FUMARATE
     Dosage: 10 MG, 1X/DAY
     Route: 048
     Dates: start: 20201116, end: 20201201
  10. SULBACILLIN [Concomitant]
     Active Substance: AMPICILLIN SODIUM\SULBACTAM SODIUM
     Indication: PYELONEPHRITIS
     Dosage: 3 G, 4X/DAY
     Route: 042
     Dates: start: 20201124, end: 20201127
  11. GOOFICE [Concomitant]
     Active Substance: ELOBIXIBAT
     Indication: PYELONEPHRITIS
     Dosage: UNK
     Dates: start: 20201125, end: 20201127

REACTIONS (5)
  - Pyrexia [Recovered/Resolved]
  - Respiration abnormal [Unknown]
  - Erythema [Recovered/Resolved]
  - Drug eruption [Recovered/Resolved]
  - Pyelonephritis [Unknown]

NARRATIVE: CASE EVENT DATE: 20201123
